FAERS Safety Report 8366939-X (Version None)
Quarter: 2012Q1

REPORT INFORMATION
  Report Type: 
  Country: None (occurrence: None)
  Receive Date: 20120323
  Receipt Date: 20110406
  Transmission Date: 20120608
  Serious: Yes (Other)
  Sender: FDA-Public Use
  Company Number: 163-21880-11040767

PATIENT
  Age: 73 Year
  Sex: Male
  Weight: 74.8435 kg

DRUGS (12)
  1. GLYBURIDE [Concomitant]
  2. SIMVASTATIN [Concomitant]
  3. POTASSIUM CHLORIDE [Concomitant]
  4. FUROSEMIDE [Concomitant]
  5. VITAMIN D [Concomitant]
  6. LISINOPRIL [Concomitant]
  7. METOPROLOL TARTRATE [Concomitant]
  8. REVLIMID [Suspect]
     Indication: MULTIPLE MYELOMA
     Dosage: 25 MG, 1 IN 1 D, PO, 10 MG, 1 IN 1 D, PO, 5MG-25MG, PO, 5 MG, DAILY X 21 DAYS, PO
     Route: 048
     Dates: start: 20100801
  9. REVLIMID [Suspect]
     Indication: MULTIPLE MYELOMA
     Dosage: 25 MG, 1 IN 1 D, PO, 10 MG, 1 IN 1 D, PO, 5MG-25MG, PO, 5 MG, DAILY X 21 DAYS, PO
     Route: 048
     Dates: start: 20090101
  10. REVLIMID [Suspect]
     Indication: MULTIPLE MYELOMA
     Dosage: 25 MG, 1 IN 1 D, PO, 10 MG, 1 IN 1 D, PO, 5MG-25MG, PO, 5 MG, DAILY X 21 DAYS, PO
     Route: 048
     Dates: start: 20110301
  11. REVLIMID [Suspect]
     Indication: MULTIPLE MYELOMA
     Dosage: 25 MG, 1 IN 1 D, PO, 10 MG, 1 IN 1 D, PO, 5MG-25MG, PO, 5 MG, DAILY X 21 DAYS, PO
     Route: 048
     Dates: start: 20070901
  12. ASPIRIN [Concomitant]

REACTIONS (1)
  - WHITE BLOOD CELL COUNT DECREASED [None]
